FAERS Safety Report 10050015 (Version 1)
Quarter: 2014Q1

REPORT INFORMATION
  Report Type: Spontaneous
  Country: None (occurrence: None)
  Receive Date: 20140331
  Receipt Date: 20140331
  Transmission Date: 20141002
  Serious: No
  Sender: FDA-Public Use
  Company Number: None

PATIENT
  Age: 27 Year
  Sex: Female
  Weight: 63.5 kg

DRUGS (2)
  1. CETIRIZINE [Suspect]
     Indication: PRURITUS
     Dosage: 1 PILL, ONCE DAILY, TAKEN BY MOUTH
     Route: 048
     Dates: start: 20140328, end: 20140330
  2. CETIRIZINE [Suspect]
     Indication: SNEEZING
     Dosage: 1 PILL, ONCE DAILY, TAKEN BY MOUTH
     Route: 048
     Dates: start: 20140328, end: 20140330

REACTIONS (2)
  - Urticaria [None]
  - Pruritus generalised [None]
